FAERS Safety Report 23680542 (Version 1)
Quarter: 2024Q1

REPORT INFORMATION
  Report Type: Spontaneous
  Country: DE (occurrence: DE)
  Receive Date: 20240328
  Receipt Date: 20240328
  Transmission Date: 20240410
  Serious: Yes (Other)
  Sender: FDA-Public Use
  Company Number: DE-BEH-2024170165

PATIENT
  Age: 83 Year
  Sex: Male

DRUGS (2)
  1. PROTHROMBIN COMPLEX CONCENTRATE NOS [Suspect]
     Active Substance: COAGULATION FACTOR IX HUMAN\COAGULATION FACTOR VII HUMAN\COAGULATION FACTOR X HUMAN\PROTHROMBIN
     Indication: Procoagulant therapy
     Dosage: 3500 INTERNATIONAL UNIT
     Route: 065
  2. APIXABAN [Concomitant]
     Active Substance: APIXABAN
     Indication: Atrial fibrillation
     Route: 065

REACTIONS (6)
  - Ischaemic stroke [Unknown]
  - Dysarthria [Unknown]
  - Hemiparesis [Unknown]
  - No adverse event [Unknown]
  - Off label use [Unknown]
  - Cerebral artery stenosis [Unknown]
